FAERS Safety Report 23862221 (Version 1)
Quarter: 2024Q2

REPORT INFORMATION
  Report Type: Other
  Country: FR (occurrence: None)
  Receive Date: 20240516
  Receipt Date: 20240516
  Transmission Date: 20240716
  Serious: Yes (Other)
  Sender: FDA-Public Use
  Company Number: FR-ROCHE-3562687

PATIENT

DRUGS (16)
  1. COBIMETINIB [Suspect]
     Active Substance: COBIMETINIB
     Indication: Metastases to central nervous system
     Route: 065
  2. COBIMETINIB [Suspect]
     Active Substance: COBIMETINIB
     Indication: Malignant melanoma stage IV
  3. VEMURAFENIB [Suspect]
     Active Substance: VEMURAFENIB
     Indication: Metastases to central nervous system
     Route: 065
  4. VEMURAFENIB [Suspect]
     Active Substance: VEMURAFENIB
     Indication: Malignant melanoma stage IV
  5. DABRAFENIB [Suspect]
     Active Substance: DABRAFENIB
     Indication: Metastases to central nervous system
     Route: 065
  6. DABRAFENIB [Suspect]
     Active Substance: DABRAFENIB
     Indication: Malignant melanoma stage IV
  7. TRAMETINIB [Suspect]
     Active Substance: TRAMETINIB
     Indication: Metastases to central nervous system
     Route: 065
  8. TRAMETINIB [Suspect]
     Active Substance: TRAMETINIB
     Indication: Malignant melanoma stage IV
  9. ENCORAFENIB [Suspect]
     Active Substance: ENCORAFENIB
     Indication: Metastases to central nervous system
     Route: 065
  10. ENCORAFENIB [Suspect]
     Active Substance: ENCORAFENIB
     Indication: Malignant melanoma stage IV
  11. BINIMETINIB [Suspect]
     Active Substance: BINIMETINIB
     Indication: Metastases to central nervous system
     Route: 065
  12. BINIMETINIB [Suspect]
     Active Substance: BINIMETINIB
     Indication: Malignant melanoma stage IV
  13. NIVOLUMAB [Suspect]
     Active Substance: NIVOLUMAB
     Indication: Metastases to central nervous system
     Route: 065
  14. NIVOLUMAB [Suspect]
     Active Substance: NIVOLUMAB
     Indication: Malignant melanoma stage IV
  15. PEMBROLIZUMAB [Suspect]
     Active Substance: PEMBROLIZUMAB
     Indication: Metastases to central nervous system
     Route: 065
  16. PEMBROLIZUMAB [Suspect]
     Active Substance: PEMBROLIZUMAB
     Indication: Malignant melanoma stage IV

REACTIONS (4)
  - Rheumatoid arthritis [Unknown]
  - Hepatic cytolysis [Unknown]
  - Dermatitis [Unknown]
  - Thyroid disorder [Unknown]
